FAERS Safety Report 9458348 (Version 1)
Quarter: 2013Q3

REPORT INFORMATION
  Report Type: Spontaneous
  Country: JP (occurrence: JP)
  Receive Date: 20130814
  Receipt Date: 20130814
  Transmission Date: 20140515
  Serious: Yes (Other)
  Sender: FDA-Public Use
  Company Number: JP-PFIZER INC-2013235783

PATIENT
  Age: 22 Year
  Sex: Female

DRUGS (4)
  1. CABERGOLINE [Suspect]
     Indication: MENSTRUATION IRREGULAR
     Dosage: 0.5 MG, WEEKLY
     Route: 048
     Dates: start: 201112
  2. DEPAKENE R [Concomitant]
     Dosage: UNK
     Dates: start: 201012
  3. TOKI-SHAKUYAKU-SAN [Concomitant]
     Dosage: UNK
  4. MUCOSTA [Concomitant]
     Dosage: UNK

REACTIONS (1)
  - Epilepsy [Unknown]
